FAERS Safety Report 6976380-X (Version None)
Quarter: 2010Q3

REPORT INFORMATION
  Report Type: 
  Country: None (occurrence: None)
  Receive Date: 20100910
  Receipt Date: 20100830
  Transmission Date: 20110219
  Serious: Yes (Other)
  Sender: FDA-Public Use
  Company Number: US-PFIZER INC-2010109759

PATIENT
  Sex: Female
  Weight: 58 kg

DRUGS (2)
  1. DILANTIN [Suspect]
     Indication: CONVULSION
     Dosage: 360 MG, DAILY
     Route: 048
     Dates: start: 20060101
  2. KEPPRA [Suspect]
     Indication: CONVULSION
     Dosage: 1500 MG, DAILY
     Route: 048
     Dates: start: 20080101

REACTIONS (8)
  - CARDIAC DISORDER [None]
  - DRUG INEFFECTIVE [None]
  - GINGIVAL SWELLING [None]
  - HYPERTENSION [None]
  - MYOCARDIAL INFARCTION [None]
  - TOOTH DISORDER [None]
  - TOOTH LOSS [None]
  - TOOTHACHE [None]
